FAERS Safety Report 9676384 (Version 1)
Quarter: 2013Q4

REPORT INFORMATION
  Report Type: Spontaneous
  Country: US (occurrence: US)
  Receive Date: 20131107
  Receipt Date: 20131107
  Transmission Date: 20140711
  Serious: Yes (Other)
  Sender: FDA-Public Use
  Company Number: US-TEVA-442163USA

PATIENT
  Sex: Female

DRUGS (2)
  1. PARAGARD 380A [Suspect]
     Indication: CONTRACEPTION
     Route: 015
     Dates: start: 200807, end: 201102
  2. MIRENA [Suspect]
     Route: 015
     Dates: start: 201102, end: 201212

REACTIONS (4)
  - Placenta praevia [Unknown]
  - Pregnancy [Unknown]
  - Infection [Unknown]
  - Drug ineffective [Unknown]
